FAERS Safety Report 8393156-X (Version None)
Quarter: 2012Q2

REPORT INFORMATION
  Report Type: 
  Country: None (occurrence: None)
  Receive Date: 20120529
  Receipt Date: 20120505
  Transmission Date: 20120825
  Serious: No
  Sender: FDA-Public Use
  Company Number: US-ABBOTT-12P-163-0933480-00

PATIENT
  Age: 55 Year
  Sex: Male
  Weight: 136.2 kg

DRUGS (1)
  1. ANDROGEL [Suspect]
     Indication: BLOOD TESTOSTERONE DECREASED
     Dates: start: 20120101

REACTIONS (5)
  - RESPIRATORY TRACT CONGESTION [None]
  - COUGH [None]
  - INSOMNIA [None]
  - DEPRESSED MOOD [None]
  - PNEUMONIA [None]
